FAERS Safety Report 15661092 (Version 1)
Quarter: 2018Q4

REPORT INFORMATION
  Report Type: Report from Study
  Country: IE (occurrence: IE)
  Receive Date: 20181127
  Receipt Date: 20181127
  Transmission Date: 20190205
  Serious: Yes (Other)
  Sender: FDA-Public Use
  Company Number: IE-EMD SERONO-9054413

PATIENT
  Age: 75 Year
  Sex: Female

DRUGS (3)
  1. REBIF [Suspect]
     Active Substance: INTERFERON BETA-1A
     Indication: RELAPSING-REMITTING MULTIPLE SCLEROSIS
     Dosage: PATIENT^S DECISION TO STOP THERAPY
     Dates: start: 20050805, end: 20091214
  2. REBIF [Suspect]
     Active Substance: INTERFERON BETA-1A
     Dosage: OFF THERAPY REASON: SWITCH TO MANUAL
     Dates: start: 20101115, end: 20131114
  3. REBIF [Suspect]
     Active Substance: INTERFERON BETA-1A
     Dosage: OFF THERAPY REASON: UNKNOWN
     Dates: start: 20131115, end: 2018

REACTIONS (2)
  - Cerebrovascular accident [Recovered/Resolved]
  - Drug ineffective [Unknown]

NARRATIVE: CASE EVENT DATE: 201805
